FAERS Safety Report 7210215-5 (Version None)
Quarter: 2010Q4

REPORT INFORMATION
  Report Type: 
  Country: None (occurrence: None)
  Receive Date: 20101223
  Receipt Date: 20101215
  Transmission Date: 20110411
  Serious: Yes (Other)
  Sender: FDA-Public Use
  Company Number: 1000017582

PATIENT
  Age: 56 Year
  Sex: Female

DRUGS (12)
  1. LEXAPRO [Suspect]
     Indication: ANXIETY
     Dosage: SEE IMAGE
     Route: 048
     Dates: start: 20020101, end: 20070101
  2. LEXAPRO [Suspect]
     Indication: DEPRESSION
     Dosage: SEE IMAGE
     Route: 048
     Dates: start: 20020101, end: 20070101
  3. LEXAPRO [Suspect]
     Indication: ANXIETY
     Dosage: SEE IMAGE
     Route: 048
     Dates: start: 20070101, end: 20100901
  4. LEXAPRO [Suspect]
     Indication: DEPRESSION
     Dosage: SEE IMAGE
     Route: 048
     Dates: start: 20070101, end: 20100901
  5. LEXAPRO [Suspect]
     Indication: ANXIETY
     Dosage: SEE IMAGE
     Route: 048
     Dates: start: 20100901, end: 20100901
  6. LEXAPRO [Suspect]
     Indication: DEPRESSION
     Dosage: SEE IMAGE
     Route: 048
     Dates: start: 20100901, end: 20100901
  7. LEXAPRO [Suspect]
     Indication: ANXIETY
     Dosage: SEE IMAGE
     Route: 048
     Dates: start: 20101101
  8. LEXAPRO [Suspect]
     Indication: DEPRESSION
     Dosage: SEE IMAGE
     Route: 048
     Dates: start: 20101101
  9. CYMBALTA [Suspect]
     Indication: ANXIETY
     Dosage: 20 MG (20 MG, 1 IN 1 D), ORAL
     Route: 048
     Dates: start: 20101001, end: 20101001
  10. CYMBALTA [Suspect]
     Indication: DEPRESSION
     Dosage: 20 MG (20 MG, 1 IN 1 D), ORAL
     Route: 048
     Dates: start: 20101001, end: 20101001
  11. XANAX [Concomitant]
  12. PROPRANOLOL [Concomitant]

REACTIONS (20)
  - ABNORMAL DREAMS [None]
  - AGITATION [None]
  - CRYING [None]
  - DEPERSONALISATION [None]
  - DISCOMFORT [None]
  - DISTURBANCE IN ATTENTION [None]
  - DIZZINESS [None]
  - DRUG WITHDRAWAL SYNDROME [None]
  - HEADACHE [None]
  - HYPERHIDROSIS [None]
  - HYPOAESTHESIA [None]
  - INFLUENZA LIKE ILLNESS [None]
  - IRRITABILITY [None]
  - MUSCLE TIGHTNESS [None]
  - NAUSEA [None]
  - OVERDOSE [None]
  - PARAESTHESIA [None]
  - SALIVARY HYPERSECRETION [None]
  - SUICIDAL IDEATION [None]
  - VERTIGO [None]
